FAERS Safety Report 7732800-4 (Version None)
Quarter: 2011Q3

REPORT INFORMATION
  Report Type: 
  Country: None (occurrence: None)
  Receive Date: 20110901
  Receipt Date: 20110823
  Transmission Date: 20111222
  Serious: Yes (Other)
  Sender: FDA-Public Use
  Company Number: ESP11000093

PATIENT
  Age: 52 Year
  Sex: Female

DRUGS (2)
  1. HYDROXYAPATITE (DURAPATITE) [Suspect]
     Dosage: ORAL
     Route: 048
     Dates: start: 20110505
  2. RISEDRONATE SODIUM [Suspect]
     Indication: OSTEOPOROSIS
     Dates: start: 20110505

REACTIONS (1)
  - EPIDERMOLYSIS BULLOSA [None]
